FAERS Safety Report 5342421-9 (Version None)
Quarter: 2007Q2

REPORT INFORMATION
  Report Type: 
  Country: None (occurrence: None)
  Receive Date: 20070416
  Receipt Date: 20070213
  Transmission Date: 20071010
  Serious: No
  Sender: FDA-Public Use
  Company Number: 2007SP000490

PATIENT
  Age: 52 Year
  Sex: Female
  Weight: 96.1626 kg

DRUGS (12)
  1. LUNESTA [Suspect]
     Indication: INSOMNIA
     Dosage: SEE IMAGE
     Route: 048
     Dates: start: 20070101, end: 20070201
  2. LUNESTA [Suspect]
     Indication: INSOMNIA
     Dosage: SEE IMAGE
     Route: 048
     Dates: start: 20070201
  3. LANTUS [Concomitant]
  4. METFORMIN HCL [Concomitant]
  5. PERCOCET [Concomitant]
  6. GABAPENTIN [Concomitant]
  7. VALSARTAN [Concomitant]
  8. TEGASEROD [Concomitant]
  9. PANTOPRAZOLE SODIUM [Concomitant]
  10. SIMVASTATIN [Concomitant]
  11. EFFEXOR [Concomitant]
  12. ALBUTEROL [Concomitant]

REACTIONS (2)
  - DRUG INEFFECTIVE [None]
  - INITIAL INSOMNIA [None]
